FAERS Safety Report 18997576 (Version 2)
Quarter: 2021Q1

REPORT INFORMATION
  Report Type: Spontaneous
  Country: US (occurrence: US)
  Receive Date: 20210311
  Receipt Date: 20210316
  Transmission Date: 20210420
  Serious: No
  Sender: FDA-Public Use
  Company Number: US-JNJFOC-20210314097

PATIENT
  Sex: Female

DRUGS (2)
  1. IMODIUM MULTI?SYMPTOM RELIEF [Suspect]
     Active Substance: DIMETHICONE\LOPERAMIDE HYDROCHLORIDE
     Indication: DIARRHOEA
  2. IMODIUM MULTI?SYMPTOM RELIEF [Suspect]
     Active Substance: DIMETHICONE\LOPERAMIDE HYDROCHLORIDE
     Indication: FREQUENT BOWEL MOVEMENTS
     Dosage: 1?4 TABLETS EVERY 2 DAYS, SOMETIME ITS 3 DAYS.?ROUGHLY 10 YEARS
     Route: 065

REACTIONS (2)
  - Product packaging issue [Not Recovered/Not Resolved]
  - Product package associated injury [Unknown]

NARRATIVE: CASE EVENT DATE: 202103
